FAERS Safety Report 9288034 (Version 1)
Quarter: 2013Q2

REPORT INFORMATION
  Report Type: Spontaneous
  Country: KP (occurrence: KP)
  Receive Date: 20130514
  Receipt Date: 20130514
  Transmission Date: 20140414
  Serious: Yes (Other)
  Sender: FDA-Public Use
  Company Number: KP-JNJFOC-20130505745

PATIENT
  Age: 20 Year
  Sex: Male

DRUGS (3)
  1. ZYRTEC [Suspect]
     Route: 048
  2. ZYRTEC [Suspect]
     Indication: URTICARIA
     Route: 048
     Dates: start: 201301, end: 201301
  3. ALLERGY MEDICATION [Suspect]
     Indication: PRODUCT USED FOR UNKNOWN INDICATION
     Route: 065
     Dates: start: 201301

REACTIONS (3)
  - Angioedema [Unknown]
  - Urticaria cholinergic [Unknown]
  - Drug hypersensitivity [None]
